FAERS Safety Report 15843529 (Version 1)
Quarter: 2019Q1

REPORT INFORMATION
  Report Type: Spontaneous
  Country: US (occurrence: US)
  Receive Date: 20190118
  Receipt Date: 20190118
  Transmission Date: 20190417
  Serious: No
  Sender: FDA-Public Use
  Company Number: US-BAYER-2019-007948

PATIENT
  Age: 77 Year
  Sex: Female
  Weight: 81 kg

DRUGS (9)
  1. EXCEDRIN [CAFFEINE;PARACETAMOL] [Suspect]
     Active Substance: ACETAMINOPHEN\CAFFEINE
     Indication: PAIN
     Dosage: UNK
     Route: 065
  2. GABAPENTIN. [Concomitant]
     Active Substance: GABAPENTIN
     Indication: FACIAL PAIN
  3. ZOLOFT [Concomitant]
     Active Substance: SERTRALINE HYDROCHLORIDE
     Indication: ANXIETY
  4. ZOCOR [Concomitant]
     Active Substance: SIMVASTATIN
     Indication: BLOOD CHOLESTEROL
     Dosage: UNK
  5. ZOLOFT [Concomitant]
     Active Substance: SERTRALINE HYDROCHLORIDE
     Indication: DEPRESSION
     Dosage: UNK
  6. BAYER ASPIRIN [Suspect]
     Active Substance: ASPIRIN
     Indication: PAIN
     Route: 048
  7. ALEVE [Suspect]
     Active Substance: NAPROXEN SODIUM
     Indication: PAIN
     Dosage: 1 DF
     Route: 048
     Dates: start: 2019
  8. ZICAM ALLERGY RELIEF [Suspect]
     Active Substance: HOMEOPATHICS
     Route: 065
  9. PANTOPRAZOLE [Concomitant]
     Active Substance: PANTOPRAZOLE
     Indication: DYSPEPSIA
     Dosage: UNK

REACTIONS (3)
  - Epistaxis [Unknown]
  - Dyspepsia [Unknown]
  - Reflux gastritis [Unknown]

NARRATIVE: CASE EVENT DATE: 20190107
